FAERS Safety Report 9464859 (Version 1)
Quarter: 2013Q3

REPORT INFORMATION
  Report Type: Spontaneous
  Country: US (occurrence: US)
  Receive Date: 20130819
  Receipt Date: 20130819
  Transmission Date: 20140515
  Serious: No
  Sender: FDA-Public Use
  Company Number: US-PFIZER INC-2013235920

PATIENT
  Age: 51 Year
  Sex: Male
  Weight: 113 kg

DRUGS (18)
  1. FLECTOR [Suspect]
     Indication: PAIN
     Dosage: ONE PATCH DAILY
     Route: 062
     Dates: start: 2002
  2. WARFARIN [Concomitant]
     Indication: ATRIAL FIBRILLATION
     Dosage: 6MG (3MG X 2) ON MONDAYS AND WEDNESDAYS AND 9MG (3MG X 3) ON OTHER WEEKDAYS, DAILY
  3. BACLOFEN [Concomitant]
     Dosage: 10 MG, 4X/DAY
  4. GLIPIZIDE [Concomitant]
     Indication: DIABETES MELLITUS
     Dosage: 5 MG, 2X/DAY
  5. CYMBALTA [Concomitant]
     Dosage: 60 MG, 2X/DAY
  6. METFORMIN [Concomitant]
     Dosage: 1000 MG, 1X/DAY
  7. ROPINIROLE [Concomitant]
     Dosage: 0.5 MG, 1X/DAY
  8. CARVEDILOL [Concomitant]
     Dosage: 25 MG, 1X/DAY
  9. LEVOTHYROXINE [Concomitant]
     Dosage: 0.05 MG, DAILY
  10. DIGOXIN [Concomitant]
     Dosage: 0.125 MG, 1X/DAY
  11. ALLOPURINOL [Concomitant]
     Dosage: 300 MG, DAILY
  12. ATORVASTATIN [Concomitant]
     Dosage: 40 MG, DAILY
  13. QUINAPRIL [Concomitant]
     Dosage: 40 MG, 2X/DAY
  14. AMLODIPINE BESILATE [Concomitant]
     Dosage: 5 MG, 1X/DAY
  15. ZYRTEC [Concomitant]
     Dosage: 10 MG, 1X/DAY
  16. DIAZEPAM [Concomitant]
     Dosage: 5 MG, AS NEEDED
  17. LANTUS [Concomitant]
     Dosage: 14 IU, 1X/DAY
  18. AVONEX [Concomitant]
     Dosage: 30 UG, WEEKLY

REACTIONS (2)
  - Intentional drug misuse [Unknown]
  - Off label use [Unknown]
